FAERS Safety Report 9413246 (Version 2)
Quarter: 2014Q1

REPORT INFORMATION
  Report Type: Spontaneous
  Country: JP (occurrence: None)
  Receive Date: 20130718
  Receipt Date: 20140304
  Transmission Date: 20141002
  Serious: Yes (Death, Hospitalization)
  Sender: FDA-Public Use
  Company Number: JP-012276

PATIENT
  Age: 74 Year
  Sex: Male

DRUGS (2)
  1. DEGARELIX [Suspect]
     Indication: PROSTATE CANCER
     Dosage: 80 MG 1X/MONTH SUBCUTANEOUS
     Route: 058
     Dates: start: 20130326, end: 20130501
  2. BICALUTAMIDE [Concomitant]

REACTIONS (2)
  - Malignant neoplasm progression [None]
  - Gastric cancer [None]
